FAERS Safety Report 16285219 (Version 2)
Quarter: 2020Q2

REPORT INFORMATION
  Report Type: Spontaneous
  Country: US (occurrence: US)
  Receive Date: 20190508
  Receipt Date: 20200423
  Transmission Date: 20200713
  Serious: Yes (Hospitalization)
  Sender: FDA-Public Use
  Company Number: US-SUN PHARMACEUTICAL INDUSTRIES LTD-2019R1-207240

PATIENT
  Age: 73 Year
  Sex: Female

DRUGS (1)
  1. GEMCITABINE. [Suspect]
     Active Substance: GEMCITABINE
     Indication: CHEMOTHERAPY
     Dosage: 1000 MILLIGRAM/SQ. METER, WEEKLY (CURRENTLY ON 3RD CYCLE)
     Route: 065

REACTIONS (5)
  - Left ventricular failure [Recovering/Resolving]
  - Ventricular hypokinesia [Recovering/Resolving]
  - Cardiac failure congestive [Recovering/Resolving]
  - Cardiotoxicity [Recovering/Resolving]
  - Cardiomyopathy [Recovering/Resolving]
